FAERS Safety Report 15611761 (Version 1)
Quarter: 2018Q4

REPORT INFORMATION
  Report Type: Spontaneous
  Country: US (occurrence: US)
  Receive Date: 20181113
  Receipt Date: 20181113
  Transmission Date: 20190205
  Serious: No
  Sender: FDA-Public Use
  Company Number: US-009507513-1810USA012893

PATIENT
  Sex: Female

DRUGS (2)
  1. FOLLISTIM [Suspect]
     Active Substance: FOLLITROPIN
     Indication: INFERTILITY FEMALE
     Dosage: 300 IU INTERNATIONAL UNIT(S), QD
     Route: 058
     Dates: start: 20180713
  2. GANIRELIX ACETATE INJECTION [Suspect]
     Active Substance: GANIRELIX ACETATE
     Indication: INFERTILITY FEMALE
     Dosage: 250 MICROGRAM, QD; STRENGTH: 250 MCG/0.5
     Route: 058
     Dates: start: 20180713

REACTIONS (2)
  - Drug ineffective [Unknown]
  - Menstrual disorder [Unknown]
